FAERS Safety Report 6324048-5 (Version None)
Quarter: 2009Q3

REPORT INFORMATION
  Report Type: 
  Country: None (occurrence: None)
  Receive Date: 20090824
  Receipt Date: 20090420
  Transmission Date: 20100115
  Serious: No
  Sender: FDA-Public Use
  Company Number: US-ABBOTT-09P-163-0569116-00

PATIENT
  Sex: Male
  Weight: 86.26 kg

DRUGS (7)
  1. NIASPAN [Suspect]
     Indication: HIGH DENSITY LIPOPROTEIN DECREASED
     Route: 048
     Dates: start: 20090406
  2. TYLENOL [Concomitant]
     Indication: INSOMNIA
     Route: 048
  3. FISH OIL [Concomitant]
     Indication: MEDICAL DIET
     Route: 048
  4. METAMUCIL [Concomitant]
     Indication: MEDICAL DIET
     Route: 048
  5. ASPIRIN [Concomitant]
     Indication: FLUSHING
     Route: 048
  6. ASPIRIN [Concomitant]
     Indication: PROPHYLAXIS
  7. MULTI-VITAMIN [Concomitant]
     Indication: VITAMIN SUPPLEMENTATION
     Route: 048

REACTIONS (3)
  - EAR DISCOMFORT [None]
  - FLUSHING [None]
  - RASH MACULAR [None]
